FAERS Safety Report 12995143 (Version 1)
Quarter: 2016Q4

REPORT INFORMATION
  Report Type: Spontaneous
  Country: CN (occurrence: CN)
  Receive Date: 20161202
  Receipt Date: 20161202
  Transmission Date: 20170207
  Serious: Yes (Other)
  Sender: FDA-Public Use
  Company Number: CN-ASTRAZENECA-2016SF20454

PATIENT
  Age: 18487 Day
  Sex: Male
  Weight: 62.5 kg

DRUGS (1)
  1. ROSUVASTATIN CALCIUM. [Suspect]
     Active Substance: ROSUVASTATIN CALCIUM
     Indication: EVIDENCE BASED TREATMENT
     Route: 048
     Dates: start: 20151213, end: 20151220

REACTIONS (3)
  - Pain in extremity [Recovered/Resolved]
  - Lacunar infarction [Recovered/Resolved]
  - Muscular weakness [Recovered/Resolved]

NARRATIVE: CASE EVENT DATE: 20151220
